FAERS Safety Report 4466539-8 (Version None)
Quarter: 2004Q3

REPORT INFORMATION
  Report Type: 
  Country: None (occurrence: None)
  Receive Date: 20040917
  Receipt Date: 20040819
  Transmission Date: 20050211
  Serious: No
  Sender: FDA-Public Use
  Company Number: US-JNJFOC-20040801568

PATIENT
  Age: 23 Year
  Sex: Female
  Weight: 56.6996 kg

DRUGS (4)
  1. ORTHO EVRA [Suspect]
     Indication: CONTRACEPTION
     Dosage: 1 DOSE(S), 3 IN 4 WEEK, TRANSDERMAL
     Route: 062
  2. VITAMINS ( ) VITAMINS [Concomitant]
  3. ADDERALL ( ) OBETROL [Concomitant]
  4. VITAMIN A [Concomitant]

REACTIONS (5)
  - APPLICATION SITE REACTION [None]
  - BREAST TENDERNESS [None]
  - INCREASED APPETITE [None]
  - MOOD ALTERED [None]
  - NAUSEA [None]
